FAERS Safety Report 11365292 (Version 3)
Quarter: 2016Q1

REPORT INFORMATION
  Report Type: Report from Study
  Country: KR (occurrence: KR)
  Receive Date: 20150811
  Receipt Date: 20160203
  Transmission Date: 20160525
  Serious: Yes (Hospitalization)
  Sender: FDA-Public Use
  Company Number: KR-ABBVIE-15K-286-1440238-00

PATIENT
  Age: 48 Year
  Sex: Female
  Weight: 50 kg

DRUGS (38)
  1. ULTRACET [Concomitant]
     Active Substance: ACETAMINOPHEN\TRAMADOL HYDROCHLORIDE
     Indication: PAIN PROPHYLAXIS
     Route: 048
     Dates: start: 20150808, end: 20150808
  2. ENTELON [Concomitant]
     Indication: PERIPHERAL VENOUS DISEASE
     Dosage: DAILY
     Route: 048
     Dates: start: 20150622
  3. VASPIN ER TAB [Concomitant]
     Indication: HYPERTENSION
     Dosage: DAILY
     Dates: end: 20150730
  4. NEBISTOL [Concomitant]
     Route: 048
     Dates: start: 20150803
  5. RABEKHAN [Concomitant]
     Indication: GASTRITIS PROPHYLAXIS
     Route: 048
     Dates: start: 20151021
  6. XPAIN ER SEMI TAB [Concomitant]
     Indication: RHEUMATOID ARTHRITIS
     Route: 048
     Dates: start: 20150813
  7. LIVALO [Concomitant]
     Active Substance: PITAVASTATIN CALCIUM
     Indication: HYPERCHOLESTEROLAEMIA
     Route: 048
     Dates: start: 20150203
  8. NEBISTOL [Concomitant]
     Indication: HYPERTENSION
     Route: 048
     Dates: start: 20150730
  9. NORVASC V [Concomitant]
     Indication: HYPERTENSION
     Dosage: 5/160 MG
     Route: 048
     Dates: start: 20150803
  10. EVISTA [Concomitant]
     Active Substance: RALOXIFENE HYDROCHLORIDE
     Indication: OSTEOPOROSIS
     Dosage: DAILY
     Route: 048
     Dates: start: 20150730
  11. LANSTON [Concomitant]
     Active Substance: LANSOPRAZOLE
     Indication: GASTRITIS PROPHYLAXIS
     Route: 048
     Dates: start: 20150730
  12. NORVASC [Concomitant]
     Active Substance: AMLODIPINE BESYLATE
     Route: 048
     Dates: start: 20150731, end: 20150802
  13. TYRENOL [Concomitant]
     Indication: PAIN PROPHYLAXIS
     Route: 048
     Dates: start: 20150731
  14. DICHLOZID [Concomitant]
     Route: 048
     Dates: start: 20150731, end: 20150802
  15. GANAKHAN [Concomitant]
     Indication: GASTRITIS PROPHYLAXIS
     Route: 048
     Dates: start: 20151021
  16. SEVIKAR [Concomitant]
     Active Substance: AMLODIPINE BESYLATE\OLMESARTAN MEDOXOMIL
     Indication: HYPERTENSION
     Route: 048
     Dates: start: 20160108
  17. VALENTAC [Concomitant]
     Route: 030
     Dates: start: 20150807, end: 20150807
  18. PENIRAMIN [Concomitant]
     Indication: INFECTION PROPHYLAXIS
     Route: 048
     Dates: start: 20150807, end: 20150807
  19. NEBILET [Concomitant]
     Active Substance: NEBIVOLOL
     Indication: HYPERTENSION
     Route: 048
     Dates: start: 20160118
  20. NORVASC [Concomitant]
     Active Substance: AMLODIPINE BESYLATE
     Indication: HYPERTENSION
     Route: 048
     Dates: start: 20160118
  21. CINALONG [Concomitant]
     Indication: HYPERTENSION
     Route: 048
     Dates: start: 20160108
  22. XPAIN ER SEMI TAB [Concomitant]
     Indication: PAIN PROPHYLAXIS
     Route: 048
     Dates: start: 20150804
  23. DICHLOZID [Concomitant]
     Indication: HYPERTENSION
     Route: 048
     Dates: start: 20150731, end: 20150731
  24. PENIRAMIN [Concomitant]
     Route: 042
     Dates: start: 20150803, end: 20150803
  25. MESEXIN [Concomitant]
     Indication: INFECTION PROPHYLAXIS
     Route: 048
     Dates: start: 20150804, end: 20150812
  26. PD [Concomitant]
     Indication: RHEUMATOID ARTHRITIS
     Route: 048
     Dates: start: 20151217
  27. PD [Concomitant]
     Route: 048
     Dates: start: 20160118
  28. DILATREND [Concomitant]
     Active Substance: CARVEDILOL
     Indication: HYPERTENSION
     Route: 048
     Dates: start: 20160108
  29. HUMIRA [Suspect]
     Active Substance: ADALIMUMAB
     Indication: RHEUMATOID ARTHRITIS
     Route: 058
     Dates: start: 20141028
  30. SIBELIUM [Concomitant]
     Active Substance: FLUNARIZINE
     Indication: HEADACHE
     Route: 048
     Dates: start: 20150731
  31. DIOVAN HCT [Concomitant]
     Active Substance: HYDROCHLOROTHIAZIDE\VALSARTAN
     Indication: HYPERTENSION
     Route: 048
     Dates: start: 20150803, end: 20150803
  32. OSMETONE [Concomitant]
     Indication: RHEUMATOID ARTHRITIS
     Route: 048
     Dates: start: 20150427
  33. PANTOLOC [Concomitant]
     Active Substance: PANTOPRAZOLE SODIUM
     Indication: GASTRITIS PROPHYLAXIS
     Dosage: DAILY
     Route: 048
     Dates: start: 20150622, end: 20150729
  34. STOGAR [Concomitant]
     Indication: GASTRITIS PROPHYLAXIS
     Dosage: DAILY
     Route: 048
     Dates: start: 20150427, end: 20150729
  35. TYRENOL [Concomitant]
     Route: 048
     Dates: start: 20150806, end: 20150806
  36. PENIRAMIN [Concomitant]
     Indication: INFECTION PROPHYLAXIS
     Route: 042
     Dates: start: 20150801, end: 20150801
  37. ADALAT [Concomitant]
     Active Substance: NIFEDIPINE
     Indication: HYPERTENSION
     Route: 048
     Dates: start: 20150802, end: 20150802
  38. VALENTAC [Concomitant]
     Indication: RHEUMATOID ARTHRITIS
     Dosage: 75 MG/A
     Route: 030
     Dates: start: 20150803, end: 20150803

REACTIONS (6)
  - Gastritis [Unknown]
  - Gastric mucosa erythema [Unknown]
  - Hypertension [Unknown]
  - Oedema [Recovered/Resolved]
  - Headache [Recovered/Resolved]
  - Foot fracture [Recovering/Resolving]

NARRATIVE: CASE EVENT DATE: 201507
